FAERS Safety Report 4356571-7 (Version None)
Quarter: 2004Q2

REPORT INFORMATION
  Report Type: 
  Country: None (occurrence: None)
  Receive Date: 20040510
  Receipt Date: 20040510
  Transmission Date: 20050107
  Serious: Yes (Other)
  Sender: FDA-Public Use
  Company Number: None

PATIENT
  Age: 38 Year
  Sex: Female
  Weight: 113.3993 kg

DRUGS (7)
  1. NEURONTIN [Suspect]
     Indication: BURNING SENSATION
     Dosage: 300 MG ONCE A DAY ORAL
     Route: 048
     Dates: start: 20040416, end: 20040429
  2. NEURONTIN [Suspect]
     Indication: HYPOAESTHESIA
     Dosage: 300 MG ONCE A DAY ORAL
     Route: 048
     Dates: start: 20040416, end: 20040429
  3. NEURONTIN [Suspect]
     Indication: PARAESTHESIA
     Dosage: 300 MG ONCE A DAY ORAL
     Route: 048
     Dates: start: 20040416, end: 20040429
  4. REBIFF [Concomitant]
  5. MOTRIN [Concomitant]
  6. TYLENOL [Concomitant]
  7. ZOLOFT [Concomitant]

REACTIONS (2)
  - MENORRHAGIA [None]
  - MENSTRUATION IRREGULAR [None]
